FAERS Safety Report 11158856 (Version 1)
Quarter: 2015Q2

REPORT INFORMATION
  Report Type: Spontaneous
  Country: US (occurrence: None)
  Receive Date: 20150601
  Receipt Date: 20150601
  Transmission Date: 20150821
  Serious: Yes (Hospitalization, Other)
  Sender: FDA-Public Use
  Company Number: None

PATIENT
  Age: 45 Year
  Sex: Female
  Weight: 161.03 kg

DRUGS (7)
  1. EFFEXOR [Concomitant]
     Active Substance: VENLAFAXINE HYDROCHLORIDE
  2. LAMICTAL [Concomitant]
     Active Substance: LAMOTRIGINE
  3. IBUPROFEN. [Concomitant]
     Active Substance: IBUPROFEN
  4. BUSPAR [Concomitant]
     Active Substance: BUSPIRONE HYDROCHLORIDE
  5. LORATADINE. [Concomitant]
     Active Substance: LORATADINE
  6. GEODON [Suspect]
     Active Substance: ZIPRASIDONE HYDROCHLORIDE\ZIPRASIDONE MESYLATE
     Indication: SLEEP DISORDER
     Route: 048
     Dates: start: 20150512, end: 20150520
  7. LISINOPRIL. [Concomitant]
     Active Substance: LISINOPRIL

REACTIONS (5)
  - Tremor [None]
  - Hallucination [None]
  - Seizure [None]
  - Confusional state [None]
  - Amnesia [None]

NARRATIVE: CASE EVENT DATE: 20150519
